FAERS Safety Report 9971930 (Version 1)
Quarter: 2014Q1

REPORT INFORMATION
  Report Type: Report from Study
  Country: US (occurrence: US)
  Receive Date: 20140306
  Receipt Date: 20140306
  Transmission Date: 20141002
  Serious: No
  Sender: FDA-Public Use
  Company Number: US-ABBVIE-13P-163-1148391-00

PATIENT
  Age: 15 Year
  Sex: Male

DRUGS (7)
  1. HUMIRA [Suspect]
     Indication: CROHN^S DISEASE
     Dates: start: 201307
  2. SINGULAIR [Concomitant]
     Indication: HYPERSENSITIVITY
  3. SINGULAIR [Concomitant]
     Indication: ASTHMA
  4. FLONASE [Concomitant]
     Indication: SEASONAL ALLERGY
     Dosage: DAILY
  5. METHOTREXATE [Concomitant]
     Indication: CROHN^S DISEASE
     Dosage: WEEKLY
  6. Z-PAK [Concomitant]
     Indication: PRODUCT USED FOR UNKNOWN INDICATION
  7. ALLEGRA [Concomitant]
     Indication: PRODUCT USED FOR UNKNOWN INDICATION

REACTIONS (2)
  - Pyrexia [Not Recovered/Not Resolved]
  - Hypersensitivity [Not Recovered/Not Resolved]
